FAERS Safety Report 22333943 (Version 1)
Quarter: 2023Q2

REPORT INFORMATION
  Report Type: Spontaneous
  Country: SE (occurrence: SE)
  Receive Date: 20230517
  Receipt Date: 20230517
  Transmission Date: 20230722
  Serious: Yes (Other)
  Sender: FDA-Public Use
  Company Number: SE-BEH-2023158170

PATIENT
  Age: 13 Year
  Sex: Male

DRUGS (4)
  1. HUMAN IMMUNOGLOBULIN G [Suspect]
     Active Substance: HUMAN IMMUNOGLOBULIN G
     Indication: Bruton^s agammaglobulinaemia
     Dosage: 140 MILLIGRAM/KILOGRAM, 1/WEEK
     Route: 058
  2. ALEMTUZUMAB [Concomitant]
     Active Substance: ALEMTUZUMAB
     Dosage: 12 MILLIGRAM, QD
     Route: 065
     Dates: start: 201812
  3. PREDNISOLONE [Concomitant]
     Active Substance: PREDNISOLONE
     Dosage: UNK
     Route: 065
     Dates: end: 201812
  4. MYCOPHENOLATE MOFETIL [Concomitant]
     Active Substance: MYCOPHENOLATE MOFETIL
     Dosage: 600 MILLIGRAM/SQ. METER
     Route: 065

REACTIONS (3)
  - Drug ineffective [Unknown]
  - Misleading laboratory test result [Unknown]
  - SARS-CoV-2 antibody test positive [Unknown]
